FAERS Safety Report 5215417-5 (Version None)
Quarter: 2007Q1

REPORT INFORMATION
  Report Type: 
  Country: None (occurrence: None)
  Receive Date: 20070116
  Receipt Date: 20070102
  Transmission Date: 20070707
  Serious: Yes (Other)
  Sender: FDA-Public Use
  Company Number: 2006S1000230

PATIENT
  Age: 16 Year
  Sex: Female

DRUGS (3)
  1. ACITRETIN [Suspect]
     Indication: ICHTHYOSIS
     Dosage: PO; SEE IMAGE
     Dates: end: 20050901
  2. ACITRETIN [Suspect]
     Indication: ICHTHYOSIS
     Dosage: PO; SEE IMAGE
     Dates: start: 20050101, end: 20060101
  3. ACITRETIN [Suspect]
     Indication: ICHTHYOSIS
     Dosage: PO; SEE IMAGE
     Dates: start: 20050101, end: 20060101

REACTIONS (3)
  - DRUG EXPOSURE DURING PREGNANCY [None]
  - TREATMENT NONCOMPLIANCE [None]
  - UNINTENDED PREGNANCY [None]
